FAERS Safety Report 5028289-9 (Version None)
Quarter: 2006Q2

REPORT INFORMATION
  Report Type: 
  Country: None (occurrence: None)
  Receive Date: 20060613
  Receipt Date: 20060601
  Transmission Date: 20061013
  Serious: Yes (Other)
  Sender: FDA-Public Use
  Company Number: 2006071816

PATIENT
  Age: 45 Year
  Sex: Female

DRUGS (1)
  1. RELPAX [Suspect]
     Indication: MIGRAINE
     Dosage: (40 MG, ONCE DAILY AS NECESSARY)

REACTIONS (2)
  - CONDITION AGGRAVATED [None]
  - MIGRAINE [None]
